FAERS Safety Report 6335048-3 (Version None)
Quarter: 2009Q3

REPORT INFORMATION
  Report Type: 
  Country: None (occurrence: None)
  Receive Date: 20090831
  Receipt Date: 20090824
  Transmission Date: 20100115
  Serious: Yes (Congenital Anomaly)
  Sender: FDA-Public Use
  Company Number: A0748058A

PATIENT
  Sex: Female
  Weight: 2.3 kg

DRUGS (8)
  1. PAXIL [Suspect]
     Indication: DEPRESSION
     Dosage: 20MG PER DAY
     Dates: start: 20020801, end: 20030101
  2. VITAMIN TAB [Concomitant]
  3. PROTON PUMP INHIBITOR [Concomitant]
  4. CARAFATE [Concomitant]
  5. DEMEROL [Concomitant]
  6. PEPCID [Concomitant]
  7. ANTIEMETIC [Concomitant]
  8. E.E.S. [Concomitant]
     Dates: start: 20030101

REACTIONS (5)
  - ATRIAL SEPTAL DEFECT [None]
  - CARDIAC MURMUR [None]
  - CONGENITAL ANOMALY [None]
  - DRUG EXPOSURE DURING PREGNANCY [None]
  - VENTRICULAR SEPTAL DEFECT [None]
